FAERS Safety Report 4596072-4 (Version None)
Quarter: 2005Q1

REPORT INFORMATION
  Report Type: 
  Country: None (occurrence: None)
  Receive Date: 20050225
  Receipt Date: 20050207
  Transmission Date: 20050727
  Serious: Yes (Hospitalization)
  Sender: FDA-Public Use
  Company Number: 202670

PATIENT
  Age: 58 Year
  Sex: Female
  Weight: 55 kg

DRUGS (6)
  1. HERCEPTIN [Suspect]
     Indication: BREAST CANCER
     Dosage: SEE IMAGE
     Route: 042
     Dates: start: 20030416, end: 20030416
  2. HERCEPTIN [Suspect]
     Indication: BREAST CANCER
     Dosage: SEE IMAGE
     Route: 042
     Dates: start: 20030507
  3. HERCEPTIN [Suspect]
     Indication: BREAST CANCER
     Dosage: SEE IMAGE
     Route: 042
     Dates: start: 20031022
  4. HERCEPTIN [Suspect]
     Indication: BREAST CANCER
     Dosage: SEE IMAGE
     Route: 042
     Dates: start: 20040416
  5. CLIMAXOL    (ESCIN, SENECO, GENTIAN, ARNICA, CRATEGUS HYDRASTIS, LOBEL [Concomitant]
  6. ASCORBIC ACID [Concomitant]

REACTIONS (4)
  - DERMATITIS [None]
  - DRUG ERUPTION [None]
  - INFLAMMATION [None]
  - JUGULAR VEIN THROMBOSIS [None]
